FAERS Safety Report 25690537 (Version 1)
Quarter: 2025Q3

REPORT INFORMATION
  Report Type: Other
  Country: US (occurrence: US)
  Receive Date: 20250818
  Receipt Date: 20250818
  Transmission Date: 20251020
  Serious: Yes (Life-Threatening, Hospitalization, Other)
  Sender: COREPHARMA LLC
  Company Number: US-CorePharma LLC-2182691

PATIENT
  Age: 16 Year
  Sex: Female

DRUGS (4)
  1. DEXAMETHASONE [Suspect]
     Active Substance: DEXAMETHASONE
     Indication: Precursor T-lymphoblastic lymphoma/leukaemia
  2. VINCRISTINE [Suspect]
     Active Substance: VINCRISTINE
  3. ASPARAGINASE [Suspect]
     Active Substance: ASPARAGINASE
  4. DAUNORUBICIN [Suspect]
     Active Substance: DAUNORUBICIN

REACTIONS (3)
  - Respiratory failure [Recovered/Resolved]
  - Tumour lysis syndrome [Recovered/Resolved]
  - Renal failure [Recovered/Resolved]
